FAERS Safety Report 17656132 (Version 1)
Quarter: 2020Q2

REPORT INFORMATION
  Report Type: Spontaneous
  Country: US (occurrence: US)
  Receive Date: 20200410
  Receipt Date: 20200410
  Transmission Date: 20200713
  Serious: Yes (Death, Life-Threatening)
  Sender: FDA-Public Use
  Company Number: None

PATIENT
  Age: 42 Month
  Sex: Male
  Weight: 19.05 kg

DRUGS (4)
  1. ALBUTEROL. [Suspect]
     Active Substance: ALBUTEROL
     Indication: ASTHMA
     Dates: start: 20181113, end: 20181114
  2. DEXAMETHASONE SODIUM PHOSPHATE. [Suspect]
     Active Substance: DEXAMETHASONE SODIUM PHOSPHATE
  3. IBUPROFEN. [Suspect]
     Active Substance: IBUPROFEN
  4. IPRATROPIUM [Suspect]
     Active Substance: IPRATROPIUM

REACTIONS (2)
  - Cough [None]
  - Pyrexia [None]

NARRATIVE: CASE EVENT DATE: 20181114
